FAERS Safety Report 10192530 (Version 2)
Quarter: 2014Q2

REPORT INFORMATION
  Report Type: Spontaneous
  Country: US (occurrence: US)
  Receive Date: 20140523
  Receipt Date: 20140619
  Transmission Date: 20141212
  Serious: Yes (Other)
  Sender: FDA-Public Use
  Company Number: US-ABBVIE-14P-163-1238515-00

PATIENT
  Age: 52 Year
  Sex: Male

DRUGS (3)
  1. ANDROGEL [Suspect]
     Indication: PRODUCT USED FOR UNKNOWN INDICATION
     Route: 061
     Dates: start: 2004
  2. ANDROGEL [Suspect]
     Dosage: 6 PUMPS DAILY
     Route: 061
     Dates: start: 2006
  3. ANDROGEL [Suspect]
     Dosage: 5 PUMPS DAILY
     Route: 061

REACTIONS (6)
  - Chest discomfort [Recovered/Resolved]
  - Coronary artery occlusion [Recovered/Resolved]
  - Dyspnoea [Recovered/Resolved]
  - Device issue [Unknown]
  - Blood cholesterol increased [Recovered/Resolved]
  - Hypertension [Recovered/Resolved]
